FAERS Safety Report 6259289-9 (Version None)
Quarter: 2009Q3

REPORT INFORMATION
  Report Type: 
  Country: None (occurrence: None)
  Receive Date: 20090707
  Receipt Date: 20090629
  Transmission Date: 20100115
  Serious: Yes (Hospitalization, Other)
  Sender: FDA-Public Use
  Company Number: PHHY2009JP06328

PATIENT
  Age: 41 Year
  Sex: Male

DRUGS (12)
  1. NEORAL [Suspect]
     Indication: RENAL TRANSPLANT
     Dosage: 350 MG/DAY
     Route: 048
     Dates: start: 20070930, end: 20071001
  2. NEORAL [Suspect]
     Dosage: 350 MG/DAY
     Route: 048
     Dates: start: 20071003, end: 20071008
  3. NEORAL [Suspect]
     Dosage: 300 MG/DAY
     Route: 048
     Dates: start: 20071009, end: 20071009
  4. NEORAL [Suspect]
     Dosage: 250 MG/DAY
     Dates: start: 20071010, end: 20071023
  5. NEORAL [Suspect]
     Dosage: 225 MG/DAY
     Route: 048
     Dates: start: 20071024, end: 20071024
  6. NEORAL [Suspect]
     Dosage: 200 MG/DAY
     Route: 048
     Dates: start: 20071025
  7. SIMULECT [Suspect]
     Indication: RENAL TRANSPLANT
     Dosage: 20 MG/DAY
     Route: 042
     Dates: start: 20071002
  8. CELLCEPT [Suspect]
     Indication: RENAL TRANSPLANT
     Dosage: UNK
     Route: 048
     Dates: start: 20071001
  9. CELLCEPT [Suspect]
     Dosage: UNK
     Route: 048
  10. PREDNISOLONE [Suspect]
     Indication: RENAL TRANSPLANT
     Dosage: UNK
     Route: 065
  11. RITUXIMAB [Suspect]
     Indication: RENAL TRANSPLANT
     Dosage: UNK
     Route: 065
     Dates: start: 20071001
  12. SANDIMMUNE [Concomitant]
     Dosage: 150 MG, UNK
     Route: 042
     Dates: start: 20071002, end: 20071002

REACTIONS (6)
  - BLOOD CREATININE INCREASED [None]
  - BLOOD UREA NITROGEN/CREATININE RATIO INCREASED [None]
  - DRUG LEVEL CHANGED [None]
  - HYPERKALAEMIA [None]
  - HYPERURICAEMIA [None]
  - NEUTROPHIL COUNT DECREASED [None]
